FAERS Safety Report 12802521 (Version 1)
Quarter: 2016Q4

REPORT INFORMATION
  Report Type: Spontaneous
  Country: US (occurrence: US)
  Receive Date: 20161003
  Receipt Date: 20161003
  Transmission Date: 20170207
  Serious: Yes (Hospitalization)
  Sender: FDA-Public Use
  Company Number: None

PATIENT
  Age: 89 Year
  Sex: Male
  Weight: 89.2 kg

DRUGS (1)
  1. WARFARIN [Suspect]
     Active Substance: WARFARIN
     Indication: PRODUCT USED FOR UNKNOWN INDICATION
     Route: 048
     Dates: start: 20151013, end: 20160324

REACTIONS (5)
  - International normalised ratio decreased [None]
  - Post procedural complication [None]
  - Skin graft [None]
  - Rash [None]
  - Cellulitis [None]

NARRATIVE: CASE EVENT DATE: 20160518
